FAERS Safety Report 15556375 (Version 1)
Quarter: 2018Q4

REPORT INFORMATION
  Report Type: Spontaneous
  Country: IT (occurrence: IT)
  Receive Date: 20181026
  Receipt Date: 20181026
  Transmission Date: 20190205
  Serious: Yes (Hospitalization, Other)
  Sender: FDA-Public Use
  Company Number: IT-SANIK-2018SA293308AA

PATIENT
  Age: 80 Year
  Sex: Male

DRUGS (8)
  1. LOVINACOR [Concomitant]
     Dosage: 40 MG, UNK
     Route: 048
  2. CLOPIDOGREL BISULFATE. [Suspect]
     Active Substance: CLOPIDOGREL BISULFATE
     Indication: PERIPHERAL ARTERIAL OCCLUSIVE DISEASE
     Route: 048
     Dates: start: 20180916, end: 20180928
  3. ACETYLSALICYLIC ACID [Concomitant]
     Active Substance: ASPIRIN
     Route: 065
  4. ISOPTIN [VERAPAMIL] [Concomitant]
     Dosage: UNK UNK, UNK
     Route: 065
  5. LEXOTAN [Concomitant]
     Active Substance: BROMAZEPAM
     Dosage: UNK UNK, UNK
     Route: 065
  6. VALSARTAN/IDROCLOROTIAZIDE [Concomitant]
     Active Substance: HYDROCHLOROTHIAZIDE\VALSARTAN
     Dosage: UNK, UNK
     Route: 065
  7. HALCION [Concomitant]
     Active Substance: TRIAZOLAM
     Dosage: UNK UNK, UNK
     Route: 065
  8. PARIET [Concomitant]
     Active Substance: RABEPRAZOLE SODIUM
     Route: 065

REACTIONS (3)
  - Oral fungal infection [Unknown]
  - Pseudomonal sepsis [Unknown]
  - Leukopenia [Unknown]

NARRATIVE: CASE EVENT DATE: 20180920
